FAERS Safety Report 11856902 (Version 2)
Quarter: 2016Q1

REPORT INFORMATION
  Report Type: Spontaneous
  Country: BR (occurrence: BR)
  Receive Date: 20151221
  Receipt Date: 20160112
  Transmission Date: 20160526
  Serious: No
  Sender: FDA-Public Use
  Company Number: BR-JNJFOC-20151215408

PATIENT
  Age: 31 Year
  Sex: Female

DRUGS (2)
  1. DUROGESIC D-TRANS [Suspect]
     Active Substance: FENTANYL
     Indication: NEURALGIA
     Route: 062
  2. DUROGESIC D-TRANS [Suspect]
     Active Substance: FENTANYL
     Indication: NEURALGIA
     Route: 062
     Dates: start: 20151130

REACTIONS (4)
  - Inappropriate schedule of drug administration [Unknown]
  - Wrong technique in product usage process [Unknown]
  - Product quality issue [Unknown]
  - Drug ineffective [Unknown]

NARRATIVE: CASE EVENT DATE: 20151207
